FAERS Safety Report 12216713 (Version 2)
Quarter: 2016Q2

REPORT INFORMATION
  Report Type: Spontaneous
  Country: US (occurrence: US)
  Receive Date: 20160329
  Receipt Date: 20160411
  Transmission Date: 20160815
  Serious: No
  Sender: FDA-Public Use
  Company Number: US-BAYER-2016-059600

PATIENT
  Age: 55 Year
  Sex: Female
  Weight: 86.17 kg

DRUGS (1)
  1. ALEVE [Suspect]
     Active Substance: NAPROXEN SODIUM
     Indication: ARTHRITIS
     Dosage: 4 DF, UNK
     Route: 048

REACTIONS (2)
  - Circumstance or information capable of leading to medication error [None]
  - Product use issue [None]
